FAERS Safety Report 7109620-7 (Version None)
Quarter: 2010Q4

REPORT INFORMATION
  Report Type: 
  Country: None (occurrence: None)
  Receive Date: 20101115
  Receipt Date: 20101115
  Transmission Date: 20110411
  Serious: Yes (Hospitalization)
  Sender: FDA-Public Use
  Company Number: None

PATIENT
  Sex: Female

DRUGS (10)
  1. QUETIAPINE [Suspect]
     Indication: BIPOLAR DISORDER
     Dosage: 200 MG TWICE DAILY PO
     Route: 048
     Dates: start: 20100615, end: 20100707
  2. ACETAMINOPHEN [Concomitant]
  3. HYDROCODONE BITARTRATE AND ACETAMINOPHEN [Concomitant]
  4. VANCOMYCIN [Concomitant]
  5. PIPERACILLIN AND TAZOBACTAM [Concomitant]
  6. DOCUSATE [Concomitant]
  7. BENZTROPINE MESYLATE [Concomitant]
  8. CITALOPRAM [Concomitant]
  9. PANTOPRAZOLE [Concomitant]
  10. ENOXAPARIN SODIUM [Concomitant]

REACTIONS (3)
  - AGRANULOCYTOSIS [None]
  - MOUTH ULCERATION [None]
  - PANCYTOPENIA [None]
